FAERS Safety Report 17810613 (Version 2)
Quarter: 2020Q2

REPORT INFORMATION
  Report Type: Report from Study
  Country: None (occurrence: CA)
  Receive Date: 20200521
  Receipt Date: 20200610
  Transmission Date: 20200714
  Serious: Yes (Hospitalization)
  Sender: FDA-Public Use
  Company Number: CA-ABBVIE-20K-028-3408514-00

PATIENT
  Age: 43 Year
  Sex: Female

DRUGS (1)
  1. HUMIRA [Suspect]
     Active Substance: ADALIMUMAB
     Indication: HIDRADENITIS
     Route: 058
     Dates: start: 20190225, end: 20200507

REACTIONS (9)
  - Hypoaesthesia [Not Recovered/Not Resolved]
  - Spinal cord neoplasm [Unknown]
  - Hidradenitis [Not Recovered/Not Resolved]
  - Intervertebral disc disorder [Unknown]
  - Vitamin B12 decreased [Unknown]
  - Magnetic resonance imaging spinal abnormal [Unknown]
  - Pain in extremity [Unknown]
  - Spondylitis [Unknown]
  - Demyelination [Unknown]

NARRATIVE: CASE EVENT DATE: 201912
